FAERS Safety Report 8314186-X (Version None)
Quarter: 2012Q2

REPORT INFORMATION
  Report Type: 
  Country: None (occurrence: None)
  Receive Date: 20120426
  Receipt Date: 20120424
  Transmission Date: 20120825
  Serious: Yes (Other)
  Sender: FDA-Public Use
  Company Number: CO-PFIZER INC-2012015292

PATIENT
  Age: 80 Year
  Sex: Male

DRUGS (4)
  1. GLIBENCLAMIDE [Concomitant]
  2. FUROSEMIDE [Concomitant]
  3. LYRICA [Suspect]
     Indication: NEURALGIA
     Dosage: 300 MG, DAILY
     Route: 048
     Dates: start: 20110101
  4. METFORMIN [Concomitant]

REACTIONS (1)
  - HYPERSOMNIA [None]
